FAERS Safety Report 25205950 (Version 6)
Quarter: 2025Q3

REPORT INFORMATION
  Report Type: Report from Study
  Country: CA (occurrence: CA)
  Receive Date: 20250417
  Receipt Date: 20250906
  Transmission Date: 20251021
  Serious: Yes (Other)
  Sender: CELLTRION
  Company Number: CA-CELLTRION INC.-2025CA002333

PATIENT

DRUGS (3)
  1. USTEKINUMAB [Suspect]
     Active Substance: USTEKINUMAB
     Indication: Colitis ulcerative
     Route: 058
     Dates: start: 20250203
  2. USTEKINUMAB [Suspect]
     Active Substance: USTEKINUMAB
     Dosage: 90 MG, Q4WEEKS (1 EVERY 1 MONTHS)
     Route: 058
     Dates: start: 20250331
  3. STEQEYMA [Suspect]
     Active Substance: USTEKINUMAB-STBA
     Indication: Colitis ulcerative
     Route: 042
     Dates: start: 20250203

REACTIONS (5)
  - Colitis ulcerative [Unknown]
  - Off label use [Unknown]
  - Influenza like illness [Unknown]
  - Drug ineffective [Unknown]
  - Therapeutic response shortened [Unknown]

NARRATIVE: CASE EVENT DATE: 20250808
